FAERS Safety Report 12726118 (Version 1)
Quarter: 2016Q3

REPORT INFORMATION
  Report Type: Spontaneous
  Country: JP (occurrence: JP)
  Receive Date: 20160908
  Receipt Date: 20160908
  Transmission Date: 20161109
  Serious: Yes (Other)
  Sender: FDA-Public Use
  Company Number: JP-JNJFOC-20160905520

PATIENT
  Age: 11 Year
  Sex: Female

DRUGS (5)
  1. TOPINA [Suspect]
     Active Substance: TOPIRAMATE
     Indication: CLONIC CONVULSION
     Route: 048
  2. CLOBAZAM [Suspect]
     Active Substance: CLOBAZAM
     Indication: CLONIC CONVULSION
     Route: 048
  3. CLONAZEPAM. [Suspect]
     Active Substance: CLONAZEPAM
     Indication: CLONIC CONVULSION
     Route: 048
  4. CARBAMAZEPINE. [Suspect]
     Active Substance: CARBAMAZEPINE
     Indication: CLONIC CONVULSION
     Route: 048
  5. LEVETIRACETAM. [Suspect]
     Active Substance: LEVETIRACETAM
     Indication: CLONIC CONVULSION
     Route: 048

REACTIONS (7)
  - Monoparesis [Recovering/Resolving]
  - Muscular weakness [Unknown]
  - Dysarthria [Unknown]
  - Salivary hypersecretion [Unknown]
  - Uveitis [Recovering/Resolving]
  - Paresis [Unknown]
  - Regressive behaviour [Unknown]
